FAERS Safety Report 21309481 (Version 1)
Quarter: 2022Q3

REPORT INFORMATION
  Report Type: Spontaneous
  Country: US (occurrence: US)
  Receive Date: 20220908
  Receipt Date: 20220908
  Transmission Date: 20221027
  Serious: No
  Sender: FDA-Public Use
  Company Number: US-BRAINTREE LABORATORIES, INC.-2021BTE00813

PATIENT
  Sex: Female

DRUGS (8)
  1. SUPREP BOWEL PREP [Suspect]
     Active Substance: MAGNESIUM SULFATE\POTASSIUM SULFATE\SODIUM SULFATE
     Indication: Colonoscopy
     Dosage: 2 X 6 OZ.BOTTLE, 1X
     Route: 048
     Dates: start: 20211006, end: 20211007
  2. SUPREP BOWEL PREP [Suspect]
     Active Substance: MAGNESIUM SULFATE\POTASSIUM SULFATE\SODIUM SULFATE
     Indication: Probiotic therapy
  3. GAS-X [Suspect]
     Active Substance: DIMETHICONE
     Dosage: 3 TABLETS, 4X (12 TABLETS TOTAL)
     Dates: start: 20211006, end: 20211007
  4. COLAZAL [Concomitant]
     Active Substance: BALSALAZIDE DISODIUM
     Dosage: 2250 MG, 3X/DAY
  5. LINZESS [Concomitant]
     Active Substance: LINACLOTIDE
     Dosage: 145 MG, 1X/DAY
  6. UNSPECIFIED PRENATAL [Concomitant]
  7. VITAMIN D [Concomitant]
     Active Substance: VITAMIN D NOS
  8. MESALAMINE [Concomitant]
     Active Substance: MESALAMINE
     Dosage: UNK, AS NEEDED

REACTIONS (2)
  - Galactostasis [Not Recovered/Not Resolved]
  - Vomiting projectile [Recovered/Resolved]

NARRATIVE: CASE EVENT DATE: 20211006
